FAERS Safety Report 8520007-2 (Version None)
Quarter: 2012Q3

REPORT INFORMATION
  Report Type: 
  Country: None (occurrence: None)
  Receive Date: 20120719
  Receipt Date: 20120717
  Transmission Date: 20120928
  Serious: No
  Sender: FDA-Public Use
  Company Number: US-PFIZER INC-2012172998

PATIENT
  Sex: Male
  Weight: 123.81 kg

DRUGS (3)
  1. PAXIL [Concomitant]
     Dosage: 40 MG, 2X/DAY
  2. XANAX [Suspect]
     Indication: ANXIETY
     Dosage: TOTAL DOSE OF 5MG
     Route: 048
     Dates: end: 20120601
  3. XANAX [Suspect]
     Dosage: OTAL DOSE OF 3MG A DAY
     Route: 048
     Dates: start: 20120601

REACTIONS (9)
  - DYSPHAGIA [None]
  - ANXIETY [None]
  - LIVER FUNCTION TEST ABNORMAL [None]
  - NERVOUSNESS [None]
  - TENSION [None]
  - DRY MOUTH [None]
  - MUSCLE TWITCHING [None]
  - DYSPNOEA [None]
  - DRUG INEFFECTIVE [None]
